FAERS Safety Report 8432602-X (Version None)
Quarter: 2012Q2

REPORT INFORMATION
  Report Type: 
  Country: None (occurrence: None)
  Receive Date: 20120613
  Receipt Date: 20120607
  Transmission Date: 20120825
  Serious: Yes (Hospitalization)
  Sender: FDA-Public Use
  Company Number: US-CELGENEUS-163-21880-12061055

PATIENT
  Sex: Female
  Weight: 81.72 kg

DRUGS (3)
  1. QUINAPRIL [Concomitant]
     Route: 065
  2. REVLIMID [Suspect]
     Indication: MULTIPLE MYELOMA
     Dosage: 25 MILLIGRAM
     Route: 048
     Dates: start: 20120401, end: 20120501
  3. LOVASTATIN [Concomitant]
     Route: 065

REACTIONS (3)
  - ASTHENIA [None]
  - LUNG DISORDER [None]
  - RASH [None]
